FAERS Safety Report 16736678 (Version 1)
Quarter: 2019Q3

REPORT INFORMATION
  Report Type: Spontaneous
  Country: CH (occurrence: CH)
  Receive Date: 20190823
  Receipt Date: 20190823
  Transmission Date: 20191005
  Serious: Yes (Other)
  Sender: FDA-Public Use
  Company Number: CH-ROCHE-2387571

PATIENT
  Age: 61 Year
  Sex: Female

DRUGS (21)
  1. MOVICOL [Concomitant]
     Active Substance: POLYETHYLENE GLYCOL 3350\POTASSIUM CHLORIDE\SODIUM BICARBONATE\SODIUM CHLORIDE
     Dosage: AS NECESSARY
     Route: 065
  2. AMLODIPINE [Suspect]
     Active Substance: AMLODIPINE BESYLATE
     Indication: PRODUCT USED FOR UNKNOWN INDICATION
     Route: 048
     Dates: start: 20190709
  3. CLEXANE [Suspect]
     Active Substance: ENOXAPARIN SODIUM
     Indication: PRODUCT USED FOR UNKNOWN INDICATION
     Route: 058
     Dates: start: 20190521
  4. ZOLPIDEM [Suspect]
     Active Substance: ZOLPIDEM TARTRATE
     Indication: PRODUCT USED FOR UNKNOWN INDICATION
     Dosage: MAX 1X/D ; AS NECESSARY
     Route: 048
  5. MORPHINE HCL [Suspect]
     Active Substance: MORPHINE HYDROCHLORIDE
     Indication: PRODUCT USED FOR UNKNOWN INDICATION
     Route: 048
     Dates: end: 20190516
  6. CALCIMAGON D3 [Concomitant]
     Active Substance: CALCIUM\CHOLECALCIFEROL
     Route: 065
  7. VENLAFAXINE [Suspect]
     Active Substance: VENLAFAXINE HYDROCHLORIDE
     Indication: PRODUCT USED FOR UNKNOWN INDICATION
     Route: 048
     Dates: start: 20190614, end: 20190730
  8. FENTANYL. [Concomitant]
     Active Substance: FENTANYL
     Route: 065
  9. LAXOBERON [Concomitant]
     Active Substance: SODIUM PICOSULFATE
     Dosage: AS NECESSARY
     Route: 065
  10. SODIUM PHOSPHATE [Concomitant]
     Active Substance: SODIUM PHOSPHATE
     Dosage: AS NECESSARY
     Route: 065
  11. VALIUM [Suspect]
     Active Substance: DIAZEPAM
     Indication: PRODUCT USED FOR UNKNOWN INDICATION
     Route: 048
     Dates: start: 20190504, end: 20190730
  12. MORPHINE HCL [Suspect]
     Active Substance: MORPHINE HYDROCHLORIDE
     Dosage: 4X/D MAX ; AS NECESSARY
     Route: 048
  13. EUTHYROX [Suspect]
     Active Substance: LEVOTHYROXINE SODIUM
     Indication: PRODUCT USED FOR UNKNOWN INDICATION
     Route: 048
     Dates: start: 20190419
  14. KIOVIG [Suspect]
     Active Substance: HUMAN IMMUNOGLOBULIN G
     Indication: GUILLAIN-BARRE SYNDROME
     Route: 042
     Dates: start: 20190605, end: 20190609
  15. PASPERTIN [METOCLOPRAMIDE HYDROCHLORIDE] [Concomitant]
     Active Substance: METOCLOPRAMIDE HYDROCHLORIDE
     Dosage: AS NECESSARY
     Route: 065
  16. MORPHINE HCL [Suspect]
     Active Substance: MORPHINE HYDROCHLORIDE
     Route: 048
     Dates: start: 201905
  17. ELTROXIN [Concomitant]
     Active Substance: LEVOTHYROXINE
     Route: 065
     Dates: end: 20190419
  18. SILVER NITRATE. [Concomitant]
     Active Substance: SILVER NITRATE
     Dosage: AS NECESSARY
     Route: 065
  19. DAFALGAN [Concomitant]
     Active Substance: ACETAMINOPHEN
     Route: 065
     Dates: end: 20190701
  20. ANXIOLIT [Concomitant]
     Active Substance: OXAZEPAM
     Route: 065
     Dates: start: 20190730
  21. DAFALGAN [Concomitant]
     Active Substance: ACETAMINOPHEN
     Dosage: AS NECESSARY
     Route: 065

REACTIONS (1)
  - Liver function test abnormal [Not Recovered/Not Resolved]

NARRATIVE: CASE EVENT DATE: 20190724
